FAERS Safety Report 24059327 (Version 1)
Quarter: 2024Q3

REPORT INFORMATION
  Report Type: Spontaneous
  Country: US (occurrence: US)
  Receive Date: 20240708
  Receipt Date: 20240708
  Transmission Date: 20241016
  Serious: No
  Sender: ROCHE
  Company Number: US-CHEPLA-2024008152

PATIENT
  Age: 55 Year
  Sex: Male
  Weight: 60 kg

DRUGS (10)
  1. VALGANCICLOVIR [Suspect]
     Active Substance: VALGANCICLOVIR
     Indication: Cytomegalovirus infection
     Dosage: ORAL VALGANCICLOVIR UNTIL SERUM CMV LEVELS WERE NEGATIVE. CURRENTLY, HE IS OFF VALGANCYCLOVIR
     Route: 048
  2. AMPHOTERICIN B [Concomitant]
     Active Substance: AMPHOTERICIN B
     Indication: Meningitis cryptococcal
     Dosage: (L-AMB) 5 MG/KG
     Route: 065
  3. AMPHOTERICIN B [Concomitant]
     Active Substance: AMPHOTERICIN B
     Dosage: RESTARTED ON L-AMB. HE COMPLETED A 5-DAY COURSE OF L-AMB AFTER NIH TRANSFER
     Route: 065
  4. FLUCYTOSINE [Concomitant]
     Active Substance: FLUCYTOSINE
     Indication: Meningitis cryptococcal
     Dosage: 25  MG EVERY 6  H. RESTARTED ON L-AMB AND 5FC
     Route: 065
  5. FLUCONAZOLE [Concomitant]
     Active Substance: FLUCONAZOLE
     Indication: Meningitis cryptococcal
     Dosage: FLUCONAZOLE 800 MG DAILY
     Route: 065
  6. FLUCONAZOLE [Concomitant]
     Active Substance: FLUCONAZOLE
     Dosage: FLUCONAZOLE 400 MG PO DAILY
     Route: 048
  7. METHYLPREDNISOLONE [Concomitant]
     Active Substance: METHYLPREDNISOLONE
     Indication: Systemic inflammatory response syndrome
     Dosage: METHYLPREDNISOLONE 1 GM IV DAILY FOR 7 DAYS
     Route: 042
  8. PREDNISONE [Concomitant]
     Active Substance: PREDNISONE
     Indication: Systemic inflammatory response syndrome
     Dosage: PREDNISONE 1  MG/KG/DAY (60  KG)
     Route: 065
  9. PREDNISONE [Concomitant]
     Active Substance: PREDNISONE
     Dosage: 80  MG PREDNISONE DAILY
     Route: 065
  10. PREDNISONE [Concomitant]
     Active Substance: PREDNISONE
     Dosage: PREDNISONE WAS TAPERED BY 5 MG EVERY MONTH OVER 12 MONTHS
     Route: 065

REACTIONS (2)
  - Off label use [Unknown]
  - No adverse event [Unknown]
